FAERS Safety Report 8439797-2 (Version None)
Quarter: 2012Q2

REPORT INFORMATION
  Report Type: 
  Country: None (occurrence: None)
  Receive Date: 20120608
  Receipt Date: 20120525
  Transmission Date: 20120825
  Serious: Yes (Other)
  Sender: FDA-Public Use
  Company Number: JP-2012-15261

PATIENT
  Age: 83 Year
  Sex: Male
  Weight: 69 kg

DRUGS (10)
  1. SAMSCA [Suspect]
     Indication: FLUID RETENTION
     Dosage: 7.5 MG MILLIGRAM(S), QAM, ORAL
     Route: 048
     Dates: start: 20120426, end: 20120506
  2. LASIX [Concomitant]
  3. ASPIRIN [Concomitant]
  4. ALDACTONE [Concomitant]
  5. LANSOPRAZOLE [Concomitant]
  6. CARVEDILOL [Concomitant]
  7. OLMESARTAN MEDOXOMIL [Concomitant]
  8. VERAPAMIL HYDROCHLORIDE [Concomitant]
  9. PLAVIX [Concomitant]
  10. WARFARIN SODIUM [Concomitant]

REACTIONS (2)
  - THIRST [None]
  - PEMPHIGOID [None]
